FAERS Safety Report 6198225-0 (Version None)
Quarter: 2009Q2

REPORT INFORMATION
  Report Type: 
  Country: None (occurrence: None)
  Receive Date: 20090521
  Receipt Date: 20090515
  Transmission Date: 20091009
  Serious: Yes (Death, Life-Threatening, Hospitalization)
  Sender: FDA-Public Use
  Company Number: JP-BRISTOL-MYERS SQUIBB COMPANY-14574123

PATIENT
  Age: 75 Year
  Sex: Male

DRUGS (13)
  1. ERBITUX [Suspect]
     Indication: RECTAL CANCER
     Dosage: 1ST INF:06FEB09(680MG/M2 1 IN 1 WK); 6TH AND RECENT INF:13FEB09-06MAR09 (425 MG 1IN 1 WK).
     Route: 042
     Dates: start: 20090213, end: 20090313
  2. TOPOTECIN [Suspect]
     Indication: RECTAL CANCER
     Dosage: 1ST INF:05FEB09(140MG 2 IN 1 WK); 3RD AND RECENT INF:05MAR09 (140MG 2 IN 1 WK).
     Route: 042
     Dates: start: 20090205, end: 20090305
  3. FLUOROURACIL [Suspect]
     Indication: RECTAL CANCER
     Dosage: 1ST INF:05FEB-05FEB09(500MG 2IN1M);3RD + RECENT INF:05MAR09(500MG 2IN 1M); 05FEB-5MAR09,750MG,2IN1M
     Route: 040
     Dates: start: 20020101
  4. LEUCOVORIN CALCIUM [Suspect]
     Indication: RECTAL CANCER
     Dosage: 1ST INF:05FEB09-05FEB09(175MG 2 IN 1 MONTH); 3RD AND RECENT INF:05MAR09 (175MG 2 IN 1 MONTH).
     Route: 042
     Dates: start: 20020101
  5. CHLOR-TRIMETON [Concomitant]
     Indication: PREMEDICATION
     Route: 042
     Dates: start: 20090206, end: 20090206
  6. DECADRON [Concomitant]
     Indication: PREMEDICATION
     Route: 042
     Dates: start: 20090206, end: 20090306
  7. DISOPYRAMIDE [Concomitant]
     Route: 048
  8. BLOPRESS [Concomitant]
     Route: 048
  9. ARTIST [Concomitant]
     Route: 048
  10. ASPIRIN [Concomitant]
     Route: 048
  11. NITRODERM [Concomitant]
  12. FASTIC [Concomitant]
     Route: 048
  13. LASIX [Concomitant]
     Route: 048

REACTIONS (3)
  - PNEUMONIA BACTERIAL [None]
  - SEPSIS [None]
  - STOMATITIS [None]
